FAERS Safety Report 19650845 (Version 1)
Quarter: 2021Q3

REPORT INFORMATION
  Report Type: Spontaneous
  Country: US (occurrence: US)
  Receive Date: 20210802
  Receipt Date: 20210802
  Transmission Date: 20211014
  Serious: Yes (Hospitalization)
  Sender: FDA-Public Use
  Company Number: None

PATIENT
  Age: 63 Year
  Sex: Male
  Weight: 124.74 kg

DRUGS (3)
  1. METOPROLOL (METOPROLOL SUCCINATE 50MG TAB,SA) [Suspect]
     Active Substance: METOPROLOL SUCCINATE
     Indication: ATRIAL FIBRILLATION
     Route: 048
     Dates: start: 20201214, end: 20210105
  2. METOPROLOL (METOPROLOL SUCCINATE 50MG TAB,SA) [Suspect]
     Active Substance: METOPROLOL SUCCINATE
     Indication: HYPERTENSION
     Route: 048
     Dates: start: 20201214, end: 20210105
  3. TAMSULOSIN (TAMSULOSIN HCL 0.4 MG CAP) [Suspect]
     Active Substance: TAMSULOSIN HYDROCHLORIDE
     Indication: BENIGN PROSTATIC HYPERPLASIA
     Route: 048
     Dates: start: 20200507, end: 20210105

REACTIONS (8)
  - Dizziness exertional [None]
  - Presyncope [None]
  - Bradycardia [None]
  - Orthostatic hypotension [None]
  - Blood pressure diastolic decreased [None]
  - Autonomic nervous system imbalance [None]
  - Atrial fibrillation [None]
  - Tunnel vision [None]

NARRATIVE: CASE EVENT DATE: 20210106
